FAERS Safety Report 5222868-1 (Version None)
Quarter: 2007Q1

REPORT INFORMATION
  Report Type: 
  Country: None (occurrence: None)
  Receive Date: 20070129
  Receipt Date: 20061031
  Transmission Date: 20070707
  Serious: No
  Sender: FDA-Public Use
  Company Number: US-GLAXOSMITHKLINE-A0625598A

PATIENT
  Sex: Male

DRUGS (5)
  1. LEXIVA [Suspect]
     Indication: HIV INFECTION
     Dosage: 1400MG TWICE PER DAY
     Route: 048
     Dates: start: 20061001
  2. RITONAVIR [Concomitant]
  3. ROBAXIN [Concomitant]
  4. PERCOCET [Concomitant]
  5. ALEVE [Concomitant]

REACTIONS (3)
  - PAROSMIA [None]
  - RASH PRURITIC [None]
  - SWELLING FACE [None]
